FAERS Safety Report 5763690-7 (Version None)
Quarter: 2008Q2

REPORT INFORMATION
  Report Type: 
  Country: None (occurrence: None)
  Receive Date: 20080610
  Receipt Date: 20080605
  Transmission Date: 20081010
  Serious: Yes (Life-Threatening, Hospitalization)
  Sender: FDA-Public Use
  Company Number: JP-BRISTOL-MYERS SQUIBB COMPANY-14203301

PATIENT
  Age: 73 Year
  Sex: Male

DRUGS (8)
  1. TAXOL [Suspect]
     Indication: PROSTATE CANCER
     Dosage: STARTED AS 140MG FROM 23FEB07 TO 24APR07,  DECREASED TO 100MG FROM 24JUL07 TO 20NOV07(10DAYS)
     Route: 041
     Dates: start: 20071120, end: 20071120
  2. PARAPLATIN [Suspect]
     Indication: PROSTATE CANCER
     Dosage: STARTED AS 730MG FROM 23FEB07 TO 10APR07,  DECREASED TO 510MG FROM 24APR07 TO 30OCT07(3DAYS)
     Route: 041
     Dates: start: 20071030, end: 20071030
  3. ESTRACYT [Suspect]
     Indication: PROSTATE CANCER
     Dosage: 0RAL, 30-OCT-2007-UNKNOWN.
     Route: 048
     Dates: start: 20070214, end: 20080129
  4. ZOMETA [Concomitant]
     Route: 041
     Dates: start: 20071106, end: 20071106
  5. DECADRON [Concomitant]
     Route: 041
     Dates: start: 20070223, end: 20071120
  6. ZANTAC [Concomitant]
     Route: 042
     Dates: start: 20070223, end: 20071120
  7. SEROTONE [Concomitant]
     Route: 041
     Dates: start: 20070223, end: 20071030
  8. MUCOSTA [Concomitant]
     Route: 048
     Dates: start: 20070214, end: 20080129

REACTIONS (3)
  - ANAEMIA [None]
  - INTERSTITIAL LUNG DISEASE [None]
  - LEUKAEMIA [None]
